FAERS Safety Report 19448839 (Version 3)
Quarter: 2023Q1

REPORT INFORMATION
  Report Type: Other
  Country: CA (occurrence: CA)
  Receive Date: 20210622
  Receipt Date: 20230209
  Transmission Date: 20230417
  Serious: Yes (Hospitalization, Other)
  Sender: FDA-Public Use
  Company Number: CA-ROCHE-2850559

PATIENT
  Age: 75 Year
  Sex: Female
  Weight: 67 kg

DRUGS (9)
  1. XOLAIR [Suspect]
     Active Substance: OMALIZUMAB
     Indication: Vital signs measurement
     Route: 058
     Dates: start: 20201101
  2. XOLAIR [Suspect]
     Active Substance: OMALIZUMAB
     Indication: Chronic spontaneous urticaria
     Route: 058
  3. XOLAIR [Suspect]
     Active Substance: OMALIZUMAB
     Route: 058
  4. SULFACETAMIDE SODIUM [Suspect]
     Active Substance: SULFACETAMIDE SODIUM
     Indication: Hypersensitivity
     Dosage: UNK
     Route: 065
  5. SULFADIAZINE [Suspect]
     Active Substance: SULFADIAZINE
     Indication: Hypersensitivity
     Route: 065
  6. SULFAMETHAZINE [Suspect]
     Active Substance: SULFAMETHAZINE
     Indication: Hypersensitivity
     Route: 065
  7. SULFAMERAZINE [Suspect]
     Active Substance: SULFAMERAZINE
     Indication: Hypersensitivity
     Route: 065
  8. BILASTINE [Concomitant]
     Active Substance: BILASTINE
     Indication: Chronic spontaneous urticaria
     Dosage: 2 DF, QD
     Route: 048
     Dates: start: 20200130
  9. PREDNISONE [Concomitant]
     Active Substance: PREDNISONE
     Indication: Chronic spontaneous urticaria
     Dosage: 1 DF, QD
     Route: 048

REACTIONS (9)
  - Hypokalaemia [Unknown]
  - Confusional state [Unknown]
  - Urinary tract infection [Unknown]
  - Blood pressure increased [Recovered/Resolved]
  - Drug hypersensitivity [Unknown]
  - Weight decreased [Unknown]
  - Malaise [Unknown]
  - Irritable bowel syndrome [Unknown]
  - Off label use [Unknown]

NARRATIVE: CASE EVENT DATE: 20210308
